FAERS Safety Report 4288888-9 (Version None)
Quarter: 2004Q1

REPORT INFORMATION
  Report Type: 
  Country: None (occurrence: None)
  Receive Date: 20040203
  Receipt Date: 20030102
  Transmission Date: 20041129
  Serious: Yes (Disabling, Other)
  Sender: FDA-Public Use
  Company Number: 200226166BWH

PATIENT
  Age: 37 Year
  Sex: Female
  Weight: 77.1115 kg

DRUGS (4)
  1. AVELOX [Suspect]
     Indication: ASTHMA
     Dosage: 400 MG, QD, ORAL
     Route: 048
     Dates: start: 20021010, end: 20021015
  2. ZITHROMAX [Concomitant]
  3. DURATUSS [Concomitant]
  4. RESPIRATORY INHALER NOS [Concomitant]

REACTIONS (2)
  - ARTHRALGIA [None]
  - TENDON DISORDER [None]
